FAERS Safety Report 11888684 (Version 1)
Quarter: 2016Q1

REPORT INFORMATION
  Report Type: Spontaneous
  Country: KR (occurrence: KR)
  Receive Date: 20160105
  Receipt Date: 20160105
  Transmission Date: 20160526
  Serious: Yes (Hospitalization)
  Sender: FDA-Public Use
  Company Number: KR-AMGEN-KORCT2015140990

PATIENT
  Age: 42 Year
  Sex: Male
  Weight: 112 kg

DRUGS (10)
  1. REGPARA [Suspect]
     Active Substance: CINACALCET HYDROCHLORIDE
     Indication: HYPERPARATHYROIDISM SECONDARY
     Dosage: 25 MG, QD
     Route: 048
     Dates: start: 20120705, end: 20120804
  2. HUMULIN R [Concomitant]
     Active Substance: INSULIN HUMAN
     Dosage: 8 IU, UNK
     Route: 058
  3. DIOVAN [Concomitant]
     Active Substance: VALSARTAN
     Dosage: 1T
     Route: 048
  4. FEROBA U [Concomitant]
     Dosage: 2T
     Route: 048
  5. FOSRENOL [Concomitant]
     Active Substance: LANTHANUM CARBONATE
     Dosage: 3T
     Route: 048
  6. BASEN                              /01290601/ [Concomitant]
     Active Substance: VOGLIBOSE
     Dosage: 3T
  7. ASPIRIN PROTECT [Concomitant]
     Active Substance: ASPIRIN
     Dosage: 100 MG, UNK
     Route: 048
  8. LASIX [Concomitant]
     Active Substance: FUROSEMIDE
     Dosage: 4T
     Route: 048
  9. CALCIO                             /00183801/ [Concomitant]
     Dosage: 0.25 MUG, UNK
  10. EPOKINE [Concomitant]
     Dosage: 4000 IU, UNK
     Route: 042

REACTIONS (1)
  - Ankle fracture [Recovered/Resolved]

NARRATIVE: CASE EVENT DATE: 20130219
